FAERS Safety Report 7596263-4 (Version None)
Quarter: 2011Q3

REPORT INFORMATION
  Report Type: 
  Country: None (occurrence: None)
  Receive Date: 20110707
  Receipt Date: 20110630
  Transmission Date: 20111222
  Serious: Yes (Hospitalization)
  Sender: FDA-Public Use
  Company Number: AT-CEPHALON-2011003392

PATIENT
  Sex: Female
  Weight: 62 kg

DRUGS (7)
  1. RITUXIMAB [Suspect]
     Route: 042
     Dates: start: 20110620
  2. EUTHYROX [Concomitant]
  3. CENIPRES [Concomitant]
  4. PANTOPRAZOLE SODIUM [Concomitant]
  5. BENDAMUSTINE HCL [Suspect]
     Route: 042
     Dates: start: 20110621
  6. PASPERTIN [Concomitant]
  7. ASPIRIN [Concomitant]

REACTIONS (1)
  - SWOLLEN TONGUE [None]
